FAERS Safety Report 5670724-7 (Version None)
Quarter: 2008Q1

REPORT INFORMATION
  Report Type: 
  Country: None (occurrence: None)
  Receive Date: 20080312
  Receipt Date: 20080301
  Transmission Date: 20080703
  Serious: Yes (Other)
  Sender: FDA-Public Use
  Company Number: CHPA2008US03862

PATIENT
  Age: 12 Year
  Sex: Male

DRUGS (1)
  1. THERAFLU SEVERE COLD (NCH)(PHENIRAMINE MALEATE, PHENYLEPHRINE HYDROCHL [Suspect]
     Indication: INFLUENZA
     Dosage: 1 DF, ONCE/SINGLE, ORAL
     Route: 048
     Dates: start: 20071227, end: 20071227

REACTIONS (3)
  - BODY TEMPERATURE INCREASED [None]
  - CONVULSION [None]
  - LOSS OF CONSCIOUSNESS [None]
